FAERS Safety Report 24440697 (Version 4)
Quarter: 2025Q4

REPORT INFORMATION
  Report Type: Report from Study
  Country: EU (occurrence: EU)
  Receive Date: 20241016
  Receipt Date: 20251113
  Transmission Date: 20260117
  Serious: Yes (Other)
  Sender: ROCHE
  Company Number: EU-ROCHE-3184006

PATIENT
  Age: 33 Year
  Sex: Male
  Weight: 58.0 kg

DRUGS (5)
  1. EMICIZUMAB [Suspect]
     Active Substance: EMICIZUMAB
     Indication: Haemophilia A with anti factor VIII
     Route: 058
     Dates: start: 20220224, end: 20220317
  2. EMICIZUMAB [Suspect]
     Active Substance: EMICIZUMAB
     Route: 058
     Dates: start: 20220324, end: 20251031
  3. NOVOEIGHT [Concomitant]
     Active Substance: ANTIHEMOPHILIC FACTOR, HUMAN RECOMBINANT
     Route: 042
     Dates: start: 1990
  4. ARCOXIA [Concomitant]
     Active Substance: ETORICOXIB
     Indication: Arthropathy
     Route: 048
     Dates: start: 20190205
  5. ESPEROCT [Concomitant]
     Active Substance: ANTIHEMOPHILIC FACTOR, HUMAN RECOMBINANT
     Indication: Haemorrhage prophylaxis
     Route: 042
     Dates: start: 20240424

REACTIONS (1)
  - Major depression [Unknown]

NARRATIVE: CASE EVENT DATE: 20220509
